FAERS Safety Report 17018006 (Version 1)
Quarter: 2019Q4

REPORT INFORMATION
  Report Type: Spontaneous
  Country: FR (occurrence: FR)
  Receive Date: 20191111
  Receipt Date: 20191111
  Transmission Date: 20200122
  Serious: Yes (Life-Threatening)
  Sender: FDA-Public Use
  Company Number: FR-PFIZER INC-2019481581

PATIENT
  Age: 13 Year
  Sex: Female
  Weight: 51 kg

DRUGS (2)
  1. SOLUPRED [PREDNISOLONE METASULFOBENZOATE SODIUM] [Suspect]
     Active Substance: PREDNISOLONE SODIUM METAZOATE
     Indication: PAIN
     Dosage: 1 DF, 1X/DAY
     Route: 048
     Dates: start: 20181008, end: 20181010
  2. IBUPROFEN. [Suspect]
     Active Substance: IBUPROFEN
     Indication: TOOTHACHE
     Dosage: UNK
     Route: 048
     Dates: start: 20181015, end: 20181024

REACTIONS (1)
  - Brain empyema [Recovered/Resolved]

NARRATIVE: CASE EVENT DATE: 20181027
